FAERS Safety Report 13176434 (Version 1)
Quarter: 2017Q1

REPORT INFORMATION
  Report Type: Spontaneous
  Country: US (occurrence: US)
  Receive Date: 20170201
  Receipt Date: 20170201
  Transmission Date: 20170428
  Serious: Yes (Life-Threatening)
  Sender: FDA-Public Use
  Company Number: US-PFIZER INC-2017044432

PATIENT
  Age: 58 Year
  Sex: Male

DRUGS (7)
  1. DOXEPIN HCL [Suspect]
     Active Substance: DOXEPIN HYDROCHLORIDE
     Indication: INSOMNIA
     Route: 048
  2. AMBIEN [Concomitant]
     Active Substance: ZOLPIDEM TARTRATE
  3. DILANTIN [Concomitant]
     Active Substance: PHENYTOIN
  4. REBIF [Suspect]
     Active Substance: INTERFERON BETA-1A
     Indication: MULTIPLE SCLEROSIS
     Dosage: UNK
     Dates: start: 20051229, end: 20060301
  5. LEXAPRO [Suspect]
     Active Substance: ESCITALOPRAM OXALATE
     Dosage: UNK
     Route: 048
     Dates: start: 20040101
  6. DEPAKOTE [Concomitant]
     Active Substance: DIVALPROEX SODIUM
  7. DALMANE [Concomitant]
     Active Substance: FLURAZEPAM HYDROCHLORIDE

REACTIONS (13)
  - Mobility decreased [Unknown]
  - Incorrect dose administered [Unknown]
  - Incoherent [Unknown]
  - Memory impairment [Unknown]
  - Drug ineffective [Unknown]
  - Viral infection [Unknown]
  - Complex partial seizures [Unknown]
  - Condition aggravated [Unknown]
  - Generalised tonic-clonic seizure [Unknown]
  - Insomnia [Unknown]
  - Speech disorder [Unknown]
  - Depression [Unknown]
  - Suicidal ideation [Unknown]
